FAERS Safety Report 6641043-7 (Version None)
Quarter: 2010Q1

REPORT INFORMATION
  Report Type: 
  Country: None (occurrence: None)
  Receive Date: 20100318
  Receipt Date: 20091217
  Transmission Date: 20100710
  Serious: Yes (Other)
  Sender: FDA-Public Use
  Company Number: US-ASTRAZENECA-2009SE32473

PATIENT
  Age: 46 Year
  Sex: Female

DRUGS (2)
  1. LISINOPRIL [Suspect]
  2. HYDROCHLOROTHIAZIDE [Concomitant]

REACTIONS (1)
  - SMALL BOWEL ANGIOEDEMA [None]
